FAERS Safety Report 11270385 (Version 2)
Quarter: 2015Q4

REPORT INFORMATION
  Report Type: Spontaneous
  Country: US (occurrence: US)
  Receive Date: 20150714
  Receipt Date: 20151105
  Transmission Date: 20160304
  Serious: Yes (Death)
  Sender: FDA-Public Use
  Company Number: US-PFIZER INC-2015227930

PATIENT
  Age: 54 Year
  Sex: Female

DRUGS (1)
  1. IBRANCE [Suspect]
     Active Substance: PALBOCICLIB
     Indication: BREAST CANCER
     Dosage: 100 MG, 1X/DAY (21 DAYS ON THEN TAKE 7 DAYS OFF)
     Route: 048
     Dates: start: 20150624

REACTIONS (7)
  - Feeling cold [Unknown]
  - Asthenia [Unknown]
  - Vomiting [Unknown]
  - Nausea [Unknown]
  - Hot flush [Unknown]
  - Fatigue [Unknown]
  - Death [Fatal]

NARRATIVE: CASE EVENT DATE: 20151019
